FAERS Safety Report 10939614 (Version 2)
Quarter: 2015Q2

REPORT INFORMATION
  Report Type: Spontaneous
  Country: US (occurrence: US)
  Receive Date: 20150322
  Receipt Date: 20150525
  Transmission Date: 20150821
  Serious: Yes (Hospitalization, Other)
  Sender: FDA-Public Use
  Company Number: US-JNJFOC-20120300995

PATIENT

DRUGS (15)
  1. OLANZAPINE. [Suspect]
     Active Substance: OLANZAPINE
     Indication: PRODUCT USED FOR UNKNOWN INDICATION
     Route: 065
  2. QUETIAPINE [Suspect]
     Active Substance: QUETIAPINE
     Indication: PRODUCT USED FOR UNKNOWN INDICATION
     Route: 065
  3. ENDOCRINE THERAPY [Concomitant]
     Route: 065
  4. ANTICONVULSANT [Concomitant]
     Active Substance: UNSPECIFIED INGREDIENT
     Route: 065
  5. LITHIUM. [Concomitant]
     Active Substance: LITHIUM
     Route: 065
  6. UNKNOWN MEDICATION [Concomitant]
     Active Substance: UNSPECIFIED INGREDIENT
     Route: 065
  7. ANTI-ANXIETY [Concomitant]
     Active Substance: UNSPECIFIED INGREDIENT
     Route: 065
  8. UNKNOWN MEDICATION [Concomitant]
     Active Substance: UNSPECIFIED INGREDIENT
     Route: 065
  9. METABOLITE [Concomitant]
     Active Substance: CHROMIUM\CITRIC ACID MONOHYDRATE\GYMNEMA SYLVESTRE LEAF EXTRACT
     Route: 065
  10. ANTITHYROID DRUG, UNSPECIFIED [Concomitant]
     Route: 065
  11. RISPERIDONE. [Suspect]
     Active Substance: RISPERIDONE
     Indication: PRODUCT USED FOR UNKNOWN INDICATION
     Route: 065
  12. ANTICHOLINERGIC [Concomitant]
     Route: 065
  13. ANTI DEPRESSANT [Concomitant]
     Active Substance: UNSPECIFIED INGREDIENT
     Route: 065
  14. UNKNOWN MEDICATION [Concomitant]
     Active Substance: UNSPECIFIED INGREDIENT
     Route: 065
  15. HYPNOTIC AGENT [Concomitant]
     Active Substance: UNSPECIFIED INGREDIENT
     Route: 065

REACTIONS (1)
  - Cerebrovascular disorder [Unknown]
